FAERS Safety Report 13493421 (Version 2)
Quarter: 2017Q2

REPORT INFORMATION
  Report Type: Report from Study
  Country: US (occurrence: US)
  Receive Date: 20170427
  Receipt Date: 20170525
  Transmission Date: 20170830
  Serious: Yes (Other)
  Sender: FDA-Public Use
  Company Number: US-ACTELION-A-NJ2017-153079

PATIENT
  Age: 73 Year
  Sex: Female

DRUGS (18)
  1. FENOFIBRATE. [Concomitant]
     Active Substance: FENOFIBRATE
  2. SKELAXIN [Concomitant]
     Active Substance: METAXALONE
  3. SINGULAIR [Concomitant]
     Active Substance: MONTELUKAST SODIUM
  4. LANTUS [Concomitant]
     Active Substance: INSULIN GLARGINE
  5. POTASSIUM [Concomitant]
     Active Substance: POTASSIUM
  6. UPTRAVI [Suspect]
     Active Substance: SELEXIPAG
     Indication: PULMONARY ARTERIAL HYPERTENSION
     Dosage: 1600 MCG, BID
     Route: 048
     Dates: start: 20160930
  7. LISINOPRIL. [Concomitant]
     Active Substance: LISINOPRIL
  8. OPSUMIT [Suspect]
     Active Substance: MACITENTAN
     Indication: PULMONARY ARTERIAL HYPERTENSION
     Dosage: 10 MG, UNK
     Route: 048
     Dates: start: 20160420
  9. METOPROLOL. [Concomitant]
     Active Substance: METOPROLOL
  10. UPTRAVI [Suspect]
     Active Substance: SELEXIPAG
     Dosage: UNK
     Route: 048
     Dates: start: 20160512
  11. NOVOLOG [Concomitant]
     Active Substance: INSULIN ASPART
  12. LIPITOR [Concomitant]
     Active Substance: ATORVASTATIN CALCIUM
  13. ALBUTEROL. [Concomitant]
     Active Substance: ALBUTEROL
  14. LEXAPRO [Concomitant]
     Active Substance: ESCITALOPRAM OXALATE
  15. DIGOXIN. [Concomitant]
     Active Substance: DIGOXIN
  16. SILDENAFIL. [Suspect]
     Active Substance: SILDENAFIL
     Indication: PRODUCT USED FOR UNKNOWN INDICATION
     Dosage: 40 MG, TID
     Route: 048
     Dates: start: 20141112
  17. ADVAIR HFA [Concomitant]
     Active Substance: FLUTICASONE PROPIONATE\SALMETEROL XINAFOATE
  18. LASIX [Concomitant]
     Active Substance: FUROSEMIDE

REACTIONS (3)
  - Auditory disorder [Unknown]
  - Deafness [Not Recovered/Not Resolved]
  - Middle ear effusion [Unknown]
